FAERS Safety Report 7266254-1 (Version None)
Quarter: 2011Q1

REPORT INFORMATION
  Report Type: 
  Country: None (occurrence: None)
  Receive Date: 20110120
  Receipt Date: 20100827
  Transmission Date: 20110831
  Serious: No
  Sender: FDA-Public Use
  Company Number: 2009AP004337

PATIENT
  Age: 61 Year
  Sex: Female

DRUGS (12)
  1. PROMETHIAZINE HYDROCHLORIDE [Concomitant]
  2. DIVALPROEX SODIUM [Concomitant]
  3. GABAPENTIN [Concomitant]
  4. APO-CARBAMAZEPINE (CARBAMAZEPINE) [Suspect]
     Indication: EPILEPSY
     Dosage: 200 MG, TAB, QID, PO
     Route: 048
  5. FORZA-10 [Concomitant]
  6. DOCUSATE [Concomitant]
  7. LANSOPRAZOLE [Concomitant]
  8. VIGABATRIN [Concomitant]
  9. VALPROIC ACID [Concomitant]
  10. FUROSEMIDE [Concomitant]
  11. LEVOTHYROXINE SODIUM [Concomitant]
  12. VALPROATE SEMISODIUM [Concomitant]

REACTIONS (2)
  - MEDICATION RESIDUE [None]
  - DRUG INEFFECTIVE [None]
